FAERS Safety Report 23554472 (Version 1)
Quarter: 2024Q1

REPORT INFORMATION
  Report Type: Spontaneous
  Country: US (occurrence: US)
  Receive Date: 20240222
  Receipt Date: 20240222
  Transmission Date: 20240410
  Serious: No
  Sender: FDA-Public Use
  Company Number: US-LANTHEUS-LMI-2023-01481

PATIENT
  Sex: Male

DRUGS (1)
  1. DEFINITY [Suspect]
     Active Substance: PERFLUTREN
     Indication: Echocardiogram
     Dosage: UNK; 1 FULL VIAL OF UN-ACTIVATED DEFINITY
     Route: 042
     Dates: start: 20231213, end: 20231213

REACTIONS (2)
  - Product preparation error [Recovered/Resolved]
  - Product administration error [Recovered/Resolved]

NARRATIVE: CASE EVENT DATE: 20231213
